FAERS Safety Report 6882085-6 (Version None)
Quarter: 2010Q3

REPORT INFORMATION
  Report Type: 
  Country: None (occurrence: None)
  Receive Date: 20100727
  Receipt Date: 20100727
  Transmission Date: 20110219
  Serious: Yes (Other)
  Sender: FDA-Public Use
  Company Number: None

PATIENT
  Age: 54 Year
  Sex: Male
  Weight: 83.4619 kg

DRUGS (9)
  1. GABAPENTIN [Suspect]
     Indication: FIBROMYALGIA
     Dosage: 1800MG PER DAY 1 IN M 2  IN AF 3 N
     Dates: start: 20100703, end: 20100703
  2. SINGULAIR [Concomitant]
  3. SINEMET [Concomitant]
  4. LORAZEPAM [Concomitant]
  5. LITHIUM CARBONATE [Concomitant]
  6. QUETIAPINE FUMERATE [Concomitant]
  7. BUPROPION [Concomitant]
  8. ALBUTEROL SULFATE AUTOHALER [Concomitant]
  9. FLO-NAZE [Concomitant]

REACTIONS (6)
  - INSOMNIA [None]
  - JOINT RANGE OF MOTION DECREASED [None]
  - MUSCLE SPASMS [None]
  - PAIN IN EXTREMITY [None]
  - PRODUCT SUBSTITUTION ISSUE [None]
  - RESTLESSNESS [None]
